FAERS Safety Report 17914243 (Version 2)
Quarter: 2020Q4

REPORT INFORMATION
  Report Type: Other
  Country: AU (occurrence: AU)
  Receive Date: 20200619
  Receipt Date: 20201023
  Transmission Date: 20210113
  Serious: Yes (Death, Hospitalization)
  Sender: FDA-Public Use
  Company Number: AU-ROCHE-2620390

PATIENT
  Age: 33 Year
  Sex: Female

DRUGS (5)
  1. PREGABALIN. [Suspect]
     Active Substance: PREGABALIN
     Indication: BACK PAIN
     Route: 065
  2. KETAMINE [Concomitant]
     Active Substance: KETAMINE
  3. DIAZEPAM. [Suspect]
     Active Substance: DIAZEPAM
     Indication: BACK PAIN
     Route: 048
  4. METHADONE [Suspect]
     Active Substance: METHADONE HYDROCHLORIDE
     Indication: BACK PAIN
     Route: 048
  5. OXYCODONE [Concomitant]
     Active Substance: OXYCODONE

REACTIONS (2)
  - Toxicity to various agents [Fatal]
  - Hypoxic-ischaemic encephalopathy [Fatal]
